FAERS Safety Report 24948534 (Version 1)
Quarter: 2025Q1

REPORT INFORMATION
  Report Type: Spontaneous
  Country: IT (occurrence: IT)
  Receive Date: 20250210
  Receipt Date: 20250210
  Transmission Date: 20250409
  Serious: Yes (Life-Threatening, Hospitalization)
  Sender: MYLAN
  Company Number: IT-MYLANLABS-2025M1009601

PATIENT
  Sex: Male

DRUGS (8)
  1. SILDENAFIL [Suspect]
     Active Substance: SILDENAFIL
     Indication: Respiratory distress
     Route: 065
  2. SILDENAFIL [Suspect]
     Active Substance: SILDENAFIL
     Indication: Pulmonary hypertension
  3. BOSENTAN [Suspect]
     Active Substance: BOSENTAN
     Indication: Respiratory distress
     Route: 065
  4. BOSENTAN [Suspect]
     Active Substance: BOSENTAN
     Indication: Pulmonary hypertension
  5. NITRIC OXIDE [Suspect]
     Active Substance: NITRIC OXIDE
     Indication: Respiratory distress
     Route: 055
  6. NITRIC OXIDE [Suspect]
     Active Substance: NITRIC OXIDE
     Indication: Pulmonary hypertension
  7. MILRINONE [Suspect]
     Active Substance: MILRINONE
     Indication: Respiratory distress
     Route: 065
  8. MILRINONE [Suspect]
     Active Substance: MILRINONE
     Indication: Pulmonary hypertension

REACTIONS (2)
  - Drug ineffective [Unknown]
  - Off label use [Unknown]
